FAERS Safety Report 4436880-3 (Version None)
Quarter: 2004Q3

REPORT INFORMATION
  Report Type: 
  Country: None (occurrence: None)
  Receive Date: 20040830
  Receipt Date: 20040820
  Transmission Date: 20050211
  Serious: Yes (Death)
  Sender: FDA-Public Use
  Company Number: US-JNJFOC-20040807522

PATIENT
  Sex: Female

DRUGS (3)
  1. RISPERDAL [Suspect]
     Route: 049
     Dates: end: 20040101
  2. COGENTIN [Concomitant]
  3. EFFEXOR [Concomitant]

REACTIONS (1)
  - CARCINOMA [None]
